FAERS Safety Report 15311424 (Version 2)
Quarter: 2018Q3

REPORT INFORMATION
  Report Type: Spontaneous
  Country: US (occurrence: US)
  Receive Date: 20180823
  Receipt Date: 20180828
  Transmission Date: 20181010
  Serious: Yes (Other)
  Sender: FDA-Public Use
  Company Number: US-ABBVIE-18P-163-2461722-00

PATIENT
  Sex: Female

DRUGS (2)
  1. SYNTHROID [Suspect]
     Active Substance: LEVOTHYROXINE SODIUM
     Indication: CONGENITAL HYPOTHYROIDISM
     Route: 048
  2. SYNTHROID [Suspect]
     Active Substance: LEVOTHYROXINE SODIUM
     Dosage: 01 TABLET 200MCG PLUS 01 TABLET 50MCG DAILY
     Route: 048

REACTIONS (4)
  - Thyroid cyst [Unknown]
  - Thyroid neoplasm [Unknown]
  - Exposure during pregnancy [Unknown]
  - Live birth [Unknown]
